FAERS Safety Report 19802562 (Version 1)
Quarter: 2021Q3

REPORT INFORMATION
  Report Type: Spontaneous
  Country: US (occurrence: US)
  Receive Date: 20210908
  Receipt Date: 20210908
  Transmission Date: 20211014
  Serious: No
  Sender: FDA-Public Use
  Company Number: US-CHANGZHOU PHARMACEUTICAL FACTORY-2118105

PATIENT
  Age: 53 Year
  Sex: Male
  Weight: 84.09 kg

DRUGS (2)
  1. ROSUVASTATIN CALCIUM. [Suspect]
     Active Substance: ROSUVASTATIN CALCIUM
     Indication: BLOOD CHOLESTEROL
     Route: 048
     Dates: start: 20210818
  2. FLUVOXAMINE [Interacting]
     Active Substance: FLUVOXAMINE
     Route: 048
     Dates: start: 20210712

REACTIONS (8)
  - Muscle tightness [Unknown]
  - Nervousness [Recovering/Resolving]
  - Insomnia [Recovering/Resolving]
  - Hypersensitivity [Recovering/Resolving]
  - Wrong technique in product usage process [Unknown]
  - Fatigue [Recovering/Resolving]
  - Feeling abnormal [Recovering/Resolving]
  - Drug interaction [Recovering/Resolving]

NARRATIVE: CASE EVENT DATE: 20210819
